FAERS Safety Report 15334645 (Version 1)
Quarter: 2018Q3

REPORT INFORMATION
  Report Type: Spontaneous
  Country: US (occurrence: US)
  Receive Date: 20180830
  Receipt Date: 20180830
  Transmission Date: 20181010
  Serious: Yes (Other)
  Sender: FDA-Public Use
  Company Number: US-MYLANLABS-2018M1064292

PATIENT
  Age: 9 Year
  Sex: Male

DRUGS (12)
  1. PREDNISONE. [Suspect]
     Active Substance: PREDNISONE
     Indication: MONOCLONAL GAMMOPATHY
     Dosage: 60 MG/M2, QD, ON DAY 1?7
     Route: 048
  2. RITUXIMAB. [Suspect]
     Active Substance: RITUXIMAB
     Indication: MONOCLONAL GAMMOPATHY
     Dosage: 375 MG/M2, SIX CYCLES
     Route: 065
  3. PREDNISONE. [Suspect]
     Active Substance: PREDNISONE
     Indication: DIFFUSE LARGE B-CELL LYMPHOMA
     Dosage: 2 MG/KG, QD, FIVE DAYS OF PULSE THERAPY EVERY THREE WEEKS
     Route: 065
  4. HYDROCORTISONE. [Suspect]
     Active Substance: HYDROCORTISONE
     Indication: DIFFUSE LARGE B-CELL LYMPHOMA
     Dosage: 15 MG, QD, ON DAY 1 OF COP (CYCLE 1); DAYS 2 AND 6 OF INDUCTION PHASE: COPADM (CYCLE 2)
     Route: 037
  5. METHOTREXATE. [Suspect]
     Active Substance: METHOTREXATE
     Indication: DIFFUSE LARGE B-CELL LYMPHOMA
     Dosage: 15 MG, QD, ON DAY 1 OF COP (CYCLE 1); DAYS 2 AND 6 OF INDUCTION PHASE: COPADM (CYCLE 2)
     Route: 037
  6. METHOTREXATE. [Suspect]
     Active Substance: METHOTREXATE
     Dosage: 1.5G/M2 ON DAY 1
     Route: 042
  7. CYCLOPHOSPHAMIDE. [Suspect]
     Active Substance: CYCLOPHOSPHAMIDE
     Indication: DIFFUSE LARGE B-CELL LYMPHOMA
     Dosage: 300 MG.M2, ON DAY 1; COP (CYCLE 1)
     Route: 042
  8. DOXORUBICIN [Suspect]
     Active Substance: DOXORUBICIN
     Indication: DIFFUSE LARGE B-CELL LYMPHOMA
     Dosage: 30 MG/M2, ON DAY 2 OF INDUCTION PHASE: COPADM (CYCLE 2)
     Route: 042
  9. VINBLASTINE [Suspect]
     Active Substance: VINBLASTINE
     Indication: DIFFUSE LARGE B-CELL LYMPHOMA
     Dosage: 3 MG/M2, DAY 1
     Route: 042
  10. VINCRISTINE [Suspect]
     Active Substance: VINCRISTINE
     Indication: DIFFUSE LARGE B-CELL LYMPHOMA
     Dosage: 1 MG/M2, ON DAY 1
     Route: 042
  11. CYCLOPHOSPHAMIDE. [Suspect]
     Active Substance: CYCLOPHOSPHAMIDE
     Indication: MONOCLONAL GAMMOPATHY
     Dosage: 125 MG/M2, DAYS 2?4 ;INDUCTION PHASE: COPADM (CYCLE 2)
     Route: 042
  12. CYCLOPHOSPHAMIDE. [Suspect]
     Active Substance: CYCLOPHOSPHAMIDE
     Dosage: 600 MG/M2, UNK
     Route: 065

REACTIONS (5)
  - Hepatic enzyme increased [Unknown]
  - Mucosal inflammation [Unknown]
  - Cryptococcal fungaemia [Unknown]
  - Neutropenia [Unknown]
  - Pyrexia [Unknown]
